FAERS Safety Report 25818074 (Version 3)
Quarter: 2025Q4

REPORT INFORMATION
  Report Type: Spontaneous
  Country: EU (occurrence: EU)
  Receive Date: 20250918
  Receipt Date: 20251015
  Transmission Date: 20260118
  Serious: Yes (Life-Threatening, Hospitalization)
  Sender: PFIZER
  Company Number: None

PATIENT
  Age: 8 Year
  Sex: Female
  Weight: 26 kg

DRUGS (5)
  1. METHYLPREDNISOLONE SODIUM SUCCINATE [Suspect]
     Active Substance: METHYLPREDNISOLONE SODIUM SUCCINATE
     Indication: Burkitt^s lymphoma
     Dosage: 60 MG/M2, FREQ:24 H
     Route: 042
     Dates: start: 20250219, end: 20250226
  2. VINCRISTINE SULFATE [Suspect]
     Active Substance: VINCRISTINE SULFATE
     Indication: Burkitt^s lymphoma
     Dosage: 2 MG/M2, FREQ:24 H
     Route: 042
     Dates: start: 20250219, end: 20250219
  3. METHOTREXATE SODIUM [Suspect]
     Active Substance: METHOTREXATE SODIUM
     Indication: Burkitt^s lymphoma
     Dosage: 3000 MG/M2, FREQ:24 H
     Route: 042
     Dates: start: 20250219, end: 20250219
  4. DOXORUBICIN HYDROCHLORIDE [Suspect]
     Active Substance: DOXORUBICIN HYDROCHLORIDE
     Indication: Burkitt^s lymphoma
     Dosage: 60 MG/M2, FREQ:24 H
     Route: 042
     Dates: start: 20250220, end: 20250220
  5. CYCLOPHOSPHAMIDE [Suspect]
     Active Substance: CYCLOPHOSPHAMIDE
     Indication: Burkitt^s lymphoma
     Dosage: 250 MG/M2, FREQ:24 H
     Route: 042
     Dates: start: 20250220, end: 20250222

REACTIONS (3)
  - Septic shock [Recovered/Resolved]
  - Gastrointestinal fungal infection [Recovered/Resolved]
  - Gastrointestinal haemorrhage [Recovered/Resolved]

NARRATIVE: CASE EVENT DATE: 20250301
